FAERS Safety Report 8214323-1 (Version None)
Quarter: 2012Q1

REPORT INFORMATION
  Report Type: 
  Country: None (occurrence: None)
  Receive Date: 20120316
  Receipt Date: 20120307
  Transmission Date: 20120608
  Serious: Yes (Other)
  Sender: FDA-Public Use
  Company Number: SE-JNJFOC-20110704468

PATIENT
  Sex: Male
  Weight: 80 kg

DRUGS (8)
  1. ENBREL [Suspect]
     Dates: start: 20110523, end: 20110603
  2. STELARA [Suspect]
     Indication: PSORIATIC ARTHROPATHY
     Route: 058
     Dates: start: 20110617, end: 20110617
  3. ENBREL [Suspect]
     Dates: start: 20100801, end: 20110424
  4. ENBREL [Suspect]
     Dates: start: 20100801, end: 20110424
  5. STELARA [Suspect]
     Indication: PSORIASIS
     Route: 058
     Dates: start: 20110617, end: 20110617
  6. ENBREL [Suspect]
     Indication: PSORIASIS
     Dates: start: 20070901, end: 20100601
  7. ENBREL [Suspect]
     Indication: PSORIATIC ARTHROPATHY
     Dates: start: 20070901, end: 20100601
  8. ENBREL [Suspect]
     Dates: start: 20110523, end: 20110603

REACTIONS (2)
  - GUILLAIN-BARRE SYNDROME [None]
  - WEIGHT DECREASED [None]
